FAERS Safety Report 8925373 (Version 2)
Quarter: 2013Q1

REPORT INFORMATION
  Report Type: Spontaneous
  Country: DE (occurrence: DE)
  Receive Date: 20121126
  Receipt Date: 20130116
  Transmission Date: 20140127
  Serious: Yes (Hospitalization)
  Sender: FDA-Public Use
  Company Number: DE-ASTRAZENECA-2012SE84984

PATIENT
  Age: 474 Month
  Sex: Male
  Weight: 61 kg

DRUGS (8)
  1. SEROQUEL [Suspect]
     Indication: AUTISM
     Dosage: 400 MG IN THE MORNING AND 300 MG IN THE EVENING
     Route: 048
     Dates: start: 20120601
  2. NEXIUM [Concomitant]
     Indication: GASTRITIS
     Route: 048
     Dates: start: 20120816
  3. OXAZEPAM [Concomitant]
     Dosage: 50 MG DAILY (20MG-10MG-20MG)
     Route: 048
     Dates: start: 2012, end: 2012
  4. OXAZEPAM [Concomitant]
     Dosage: 30 MG DAILY (10MG-10MG-10MG)
     Route: 048
     Dates: start: 2012, end: 2012
  5. DIPIPERON [Concomitant]
     Dates: start: 20120821
  6. MOVICOL [Concomitant]
  7. ALLUPURINOL [Concomitant]
  8. PANTOPRAZOL [Concomitant]

REACTIONS (17)
  - Self injurious behaviour [Not Recovered/Not Resolved]
  - Screaming [Not Recovered/Not Resolved]
  - Gait disturbance [Not Recovered/Not Resolved]
  - Walking disability [Not Recovered/Not Resolved]
  - Crying [Not Recovered/Not Resolved]
  - Head banging [Not Recovered/Not Resolved]
  - Mouth injury [Not Recovered/Not Resolved]
  - Illusion [Not Recovered/Not Resolved]
  - Hyperphagia [Not Recovered/Not Resolved]
  - Aggression [Not Recovered/Not Resolved]
  - Faecaloma [Not Recovered/Not Resolved]
  - Barrett^s oesophagus [Not Recovered/Not Resolved]
  - Confabulation [Not Recovered/Not Resolved]
  - Abnormal dreams [Not Recovered/Not Resolved]
  - Restlessness [Not Recovered/Not Resolved]
  - Vomiting [Unknown]
  - Off label use [Unknown]
